FAERS Safety Report 7728862-0 (Version None)
Quarter: 2011Q3

REPORT INFORMATION
  Report Type: 
  Country: None (occurrence: None)
  Receive Date: 20110906
  Receipt Date: 20110823
  Transmission Date: 20111222
  Serious: No
  Sender: FDA-Public Use
  Company Number: US-B.I. PHARMACEUTICALS,INC./RIDGEFIELD-2011-BP-20599BP

PATIENT
  Sex: Female

DRUGS (7)
  1. ISOSORBIDE DINITRATE [Suspect]
     Dosage: 60 MG
     Route: 048
     Dates: start: 20040101
  2. LANTUS [Concomitant]
     Indication: TYPE 2 DIABETES MELLITUS
     Dosage: 8 RT
     Route: 058
     Dates: start: 20050101
  3. TRADJENTA [Suspect]
     Indication: TYPE 2 DIABETES MELLITUS
     Dosage: 5 MG
     Route: 048
     Dates: start: 20110811, end: 20110822
  4. ASPIRIN [Concomitant]
     Dosage: 81 MG
     Route: 048
     Dates: start: 20040101
  5. GLIMPERIDE [Concomitant]
     Indication: TYPE 2 DIABETES MELLITUS
     Route: 048
     Dates: start: 20050101
  6. ZOCOR [Concomitant]
     Dosage: 80 MG
     Route: 048
     Dates: start: 20040101
  7. TOPROL-XL [Concomitant]
     Dosage: 25 MG
     Route: 048
     Dates: start: 20040101

REACTIONS (6)
  - ASTHENIA [None]
  - TACHYCARDIA [None]
  - DIZZINESS [None]
  - BLOOD GLUCOSE INCREASED [None]
  - FEELING JITTERY [None]
  - CONFUSIONAL STATE [None]
